FAERS Safety Report 9466260 (Version 1)
Quarter: 2013Q3

REPORT INFORMATION
  Report Type: Spontaneous
  Country: US (occurrence: US)
  Receive Date: 20130820
  Receipt Date: 20130820
  Transmission Date: 20140515
  Serious: No
  Sender: FDA-Public Use
  Company Number: US-PFIZER INC-2013237592

PATIENT
  Sex: Male

DRUGS (1)
  1. INLYTA [Suspect]
     Indication: NEOPLASM MALIGNANT
     Dosage: UNK

REACTIONS (2)
  - Disease progression [Unknown]
  - Neoplasm malignant [Unknown]
